FAERS Safety Report 7439110-3 (Version None)
Quarter: 2011Q2

REPORT INFORMATION
  Report Type: 
  Country: None (occurrence: None)
  Receive Date: 20110427
  Receipt Date: 20110415
  Transmission Date: 20111010
  Serious: Yes (Hospitalization)
  Sender: FDA-Public Use
  Company Number: US-JNJFOC-20110311829

PATIENT
  Sex: Male
  Weight: 70.31 kg

DRUGS (6)
  1. DURAGESIC [Suspect]
     Indication: NEURALGIA
     Route: 062
  2. FENTANYL-100 [Suspect]
     Indication: NEURALGIA
     Route: 062
  3. MULTI-VITAMINS [Concomitant]
     Indication: NUTRITIONAL SUPPORT
     Route: 048
  4. LIDODERM [Concomitant]
     Route: 062
  5. STOOL SOFTENER [Concomitant]
     Indication: ABNORMAL FAECES
     Route: 048
  6. FLEXERIL [Concomitant]
     Indication: MUSCLE RELAXANT THERAPY
     Route: 048

REACTIONS (4)
  - MUSCULOSKELETAL STIFFNESS [None]
  - RASH [None]
  - DRUG INEFFECTIVE [None]
  - HOSPITALISATION [None]
